FAERS Safety Report 5362314-0 (Version None)
Quarter: 2007Q2

REPORT INFORMATION
  Report Type: 
  Country: None (occurrence: None)
  Receive Date: 20070619
  Receipt Date: 20070613
  Transmission Date: 20071010
  Serious: Yes (Hospitalization)
  Sender: FDA-Public Use
  Company Number: B0474951A

PATIENT
  Age: 60 Year
  Sex: Female

DRUGS (2)
  1. PAXIL [Suspect]
     Indication: DEPRESSION
     Dosage: 20MG PER DAY
     Route: 048
     Dates: end: 20070604
  2. MIRADOL [Suspect]
     Indication: DRUG USE FOR UNKNOWN INDICATION
     Dosage: 50MG PER DAY
     Route: 048
     Dates: end: 20070604

REACTIONS (4)
  - PARKINSONIAN GAIT [None]
  - PARKINSONISM [None]
  - POSTURE ABNORMAL [None]
  - TREMOR [None]
